FAERS Safety Report 6782251-4 (Version None)
Quarter: 2010Q2

REPORT INFORMATION
  Report Type: 
  Country: None (occurrence: None)
  Receive Date: 20100621
  Receipt Date: 20100607
  Transmission Date: 20101027
  Serious: Yes (Hospitalization, Congenital Anomaly)
  Sender: FDA-Public Use
  Company Number: FR-WATSON-2010-08018

PATIENT
  Sex: Male
  Weight: 3.2 kg

DRUGS (5)
  1. PREDNISONE TAB [Suspect]
     Indication: DRUG USE FOR UNKNOWN INDICATION
     Dosage: 11 MG, DAILY
     Route: 064
  2. OMEPRAZOLE [Suspect]
     Indication: DRUG USE FOR UNKNOWN INDICATION
     Dosage: UNK
     Route: 064
  3. HYDROXYZINE HCL [Suspect]
     Indication: DRUG USE FOR UNKNOWN INDICATION
     Dosage: UNK
     Route: 064
  4. FLUTICASONE W/SALMETEROL [Suspect]
     Indication: DRUG USE FOR UNKNOWN INDICATION
     Dosage: 1000 UG/ 50 UG
     Route: 055
  5. BECLOMETHASONE DIPROPIONATE [Suspect]
     Indication: DRUG USE FOR UNKNOWN INDICATION
     Dosage: 200 UG, UNK
     Route: 045

REACTIONS (6)
  - ADRENAL INSUFFICIENCY NEONATAL [None]
  - DRUG WITHDRAWAL SYNDROME NEONATAL [None]
  - ERYSIPELAS [None]
  - HAEMANGIOMA OF SKIN [None]
  - HYPOGLYCAEMIC SEIZURE [None]
  - HYPOSPADIAS [None]
